FAERS Safety Report 9497737 (Version 1)
Quarter: 2013Q3

REPORT INFORMATION
  Report Type: Spontaneous
  Country: US (occurrence: None)
  Receive Date: 20130903
  Receipt Date: 20130903
  Transmission Date: 20140515
  Serious: No
  Sender: FDA-Public Use
  Company Number: None

PATIENT
  Age: 18 Year
  Sex: Female
  Weight: 85.73 kg

DRUGS (1)
  1. CREST PRO-HEALT [Suspect]
     Indication: COSMETIC BODY PIERCING
     Dates: start: 20130831, end: 20130902

REACTIONS (5)
  - Paraesthesia oral [None]
  - Hypoaesthesia oral [None]
  - Gingival pain [None]
  - Gingival blister [None]
  - Oedema mouth [None]
